FAERS Safety Report 15966276 (Version 1)
Quarter: 2019Q1

REPORT INFORMATION
  Report Type: Spontaneous
  Country: US (occurrence: US)
  Receive Date: 20190215
  Receipt Date: 20190215
  Transmission Date: 20190418
  Serious: No
  Sender: FDA-Public Use
  Company Number: US-009507513-1902USA001298

PATIENT
  Sex: Female

DRUGS (1)
  1. REBETOL [Suspect]
     Active Substance: RIBAVIRIN
     Dosage: UNK

REACTIONS (5)
  - No adverse event [Unknown]
  - Circumstance or information capable of leading to medication error [Unknown]
  - Occupational exposure to product [Unknown]
  - Accidental exposure to product [Unknown]
  - Product preparation issue [Unknown]

NARRATIVE: CASE EVENT DATE: 20190116
